FAERS Safety Report 15454493 (Version 2)
Quarter: 2019Q1

REPORT INFORMATION
  Report Type: Spontaneous
  Country: US (occurrence: US)
  Receive Date: 20181002
  Receipt Date: 20190305
  Transmission Date: 20190417
  Serious: No
  Sender: FDA-Public Use
  Company Number: US-PFIZER INC-2018386398

PATIENT
  Age: 62 Year
  Sex: Female
  Weight: 83 kg

DRUGS (4)
  1. FASLODEX [Concomitant]
     Active Substance: FULVESTRANT
     Dosage: UNK
     Dates: start: 20180308
  2. IBRANCE [Suspect]
     Active Substance: PALBOCICLIB
     Dosage: 100 MG, CYCLIC (ONCE A DAY BY MOUTH FOR 21 DAYS, FOLLOWED BY A 7 DAY BREAK)
     Route: 048
     Dates: start: 20180308, end: 20190205
  3. FASLODEX [Concomitant]
     Active Substance: FULVESTRANT
     Indication: NEOPLASM MALIGNANT
     Dosage: 1000 MG, MONTHLY (TWO 500 MG SHOTS IN HER HIP AREA EVERY 30 DAYS)
  4. IBRANCE [Suspect]
     Active Substance: PALBOCICLIB
     Indication: NEOPLASM RECURRENCE
     Dosage: 125 MG, CYCLIC (125MGX1X21DAYS)
     Dates: start: 201801

REACTIONS (4)
  - Full blood count decreased [Not Recovered/Not Resolved]
  - Weight increased [Not Recovered/Not Resolved]
  - Skin lesion [Unknown]
  - Pain [Unknown]

NARRATIVE: CASE EVENT DATE: 20180415
